FAERS Safety Report 7402811-7 (Version None)
Quarter: 2011Q2

REPORT INFORMATION
  Report Type: 
  Country: None (occurrence: None)
  Receive Date: 20110408
  Receipt Date: 20110328
  Transmission Date: 20111010
  Serious: Yes (Other)
  Sender: FDA-Public Use
  Company Number: PHHY2011AR25945

PATIENT
  Sex: Male

DRUGS (1)
  1. EXFORGE [Suspect]
     Dosage: 320/5 MG

REACTIONS (4)
  - OEDEMA PERIPHERAL [None]
  - CELLULITIS [None]
  - PYREXIA [None]
  - PRURITUS [None]
